FAERS Safety Report 8734888 (Version 3)
Quarter: 2012Q4

REPORT INFORMATION
  Report Type: 
  Country: US (occurrence: US)
  Receive Date: 20120821
  Receipt Date: 20120914
  Transmission Date: 20130627
  Serious: No
  Sender: FDA-Public Use
  Company Number: US-PFIZER INC-2012200440

PATIENT
  Age: 54 Year
  Sex: Female

DRUGS (2)
  1. ADVIL [Suspect]
     Indication: INFLAMMATION
     Dosage: three liquigel of 200 mg, three times a day
     Route: 048
     Dates: start: 201205, end: 201208
  2. ADVIL [Suspect]
     Dosage: 600 mg, three times a day
     Route: 048
     Dates: start: 201208, end: 201208

REACTIONS (10)
  - Overdose [Unknown]
  - Drug ineffective [Unknown]
  - Hypersensitivity [Recovered/Resolved]
  - Oedema [Recovered/Resolved]
  - Headache [Recovered/Resolved]
  - Fatigue [Recovered/Resolved]
  - Swelling [Recovered/Resolved]
  - Pain [Not Recovered/Not Resolved]
  - Condition aggravated [Not Recovered/Not Resolved]
  - Weight decreased [Unknown]
